FAERS Safety Report 25957520 (Version 1)
Quarter: 2025Q4

REPORT INFORMATION
  Report Type: Report from Study
  Country: EU (occurrence: EU)
  Receive Date: 20251024
  Receipt Date: 20251024
  Transmission Date: 20260117
  Serious: Yes (Hospitalization, Other)
  Sender: MERCK SHARP & DOHME LLC
  Company Number: EU-009507513-2333535

PATIENT
  Age: 74 Year
  Sex: Female

DRUGS (11)
  1. WINREVAIR [Suspect]
     Active Substance: SOTATERCEPT-CSRK
     Indication: Pulmonary arterial hypertension
     Dates: start: 20250605
  2. WINREVAIR [Suspect]
     Active Substance: SOTATERCEPT-CSRK
  3. WINREVAIR [Suspect]
     Active Substance: SOTATERCEPT-CSRK
  4. WINREVAIR [Suspect]
     Active Substance: SOTATERCEPT-CSRK
  5. TADALAFIL [Concomitant]
     Active Substance: TADALAFIL
  6. MACITENTAN [Concomitant]
     Active Substance: MACITENTAN
  7. PANTOPRAZOLE [Concomitant]
     Active Substance: PANTOPRAZOLE
  8. RAMIPRIL [Concomitant]
     Active Substance: RAMIPRIL
  9. ATORVASTATIN [Concomitant]
     Active Substance: ATORVASTATIN
  10. GABAPENTIN [Concomitant]
     Active Substance: GABAPENTIN
  11. ALBUTEROL SULFATE [Concomitant]
     Active Substance: ALBUTEROL SULFATE

REACTIONS (8)
  - Traumatic intracranial haemorrhage [Recovered/Resolved]
  - Bladder cancer recurrent [Unknown]
  - Lymphadenopathy [Unknown]
  - Epistaxis [Unknown]
  - Dyspnoea [Unknown]
  - Post-traumatic neck syndrome [Recovered/Resolved]
  - Contusion [Not Recovered/Not Resolved]
  - Road traffic accident [Unknown]

NARRATIVE: CASE EVENT DATE: 20250925
